FAERS Safety Report 8858857 (Version 2)
Quarter: 2013Q2

REPORT INFORMATION
  Report Type: Spontaneous
  Country: US (occurrence: US)
  Receive Date: 20121024
  Receipt Date: 20130403
  Transmission Date: 20140414
  Serious: Yes (Hospitalization)
  Sender: FDA-Public Use
  Company Number: US-BAYER-2012-109484

PATIENT
  Age: 32 Year
  Sex: Female

DRUGS (12)
  1. YAZ [Suspect]
     Route: 048
  2. YASMIN [Suspect]
     Route: 048
  3. OCELLA [Suspect]
     Route: 048
  4. BEYAZ [Suspect]
  5. BUSPIRONE HYDROCHLORIDE [Concomitant]
     Dosage: 5 MG, UNK
  6. ZYRTEC [Concomitant]
     Dosage: 10 MG, UNK
  7. FLEXERIL [Concomitant]
  8. CYCLOBENZAPRINE [Concomitant]
  9. PREDNISONE [Concomitant]
  10. TRAMADOL [Concomitant]
  11. MUSCLE RELAXANTS [Concomitant]
  12. STEROIDS [Concomitant]

REACTIONS (5)
  - Deep vein thrombosis [None]
  - Thrombophlebitis superficial [None]
  - Pain [None]
  - Injury [None]
  - Pain [None]
